FAERS Safety Report 7405897-9 (Version None)
Quarter: 2011Q2

REPORT INFORMATION
  Report Type: 
  Country: None (occurrence: None)
  Receive Date: 20110411
  Receipt Date: 20110404
  Transmission Date: 20111010
  Serious: Yes (Hospitalization)
  Sender: FDA-Public Use
  Company Number: DE-PFIZER INC-DE-WYE-H12817210

PATIENT
  Age: 79 Year
  Sex: Female
  Weight: 85 kg

DRUGS (10)
  1. PANTOPRAZOLE [Interacting]
     Indication: GASTRITIS
     Dosage: 40 MG, 1X/DAY
     Route: 048
     Dates: start: 20090701
  2. COPYRKAL [Concomitant]
     Route: 048
  3. DIGITOXIN [Concomitant]
     Dosage: UNK
     Route: 048
     Dates: start: 20091001
  4. SYMBICORT [Concomitant]
     Dosage: UNK
     Route: 055
     Dates: start: 20090701
  5. TORASEMIDE [Concomitant]
     Dosage: UNK
     Route: 048
     Dates: start: 20091114
  6. MCP ^BETAPHARM^ [Concomitant]
     Dosage: UNK
     Route: 048
     Dates: start: 20090701
  7. AMPICILLIN AND SULBACTAM [Suspect]
     Indication: PNEUMONIA
     Dosage: 750 MG, 2X/DAY
     Route: 048
     Dates: start: 20091010, end: 20091017
  8. RAMIPRIL [Concomitant]
     Dosage: UNK
     Route: 048
     Dates: start: 20091001
  9. LEVOFLOXACIN [Interacting]
     Indication: URINARY TRACT INFECTION
     Dosage: 500 MG, 1X/DAY
     Route: 048
     Dates: start: 20090811, end: 20090819
  10. TORASEMIDE [Concomitant]
     Dosage: UNK
     Route: 048
     Dates: start: 20090701, end: 20091113

REACTIONS (2)
  - CLOSTRIDIUM DIFFICILE COLITIS [None]
  - DRUG INTERACTION [None]
